FAERS Safety Report 10026031 (Version 1)
Quarter: 2014Q1

REPORT INFORMATION
  Report Type: Report from Study
  Country: US (occurrence: US)
  Receive Date: 20140320
  Receipt Date: 20140320
  Transmission Date: 20141002
  Serious: Yes (Other)
  Sender: FDA-Public Use
  Company Number: US-BAXTER-2014BAX014269

PATIENT
  Sex: 0

DRUGS (3)
  1. SEVOFLURANE, USP [Suspect]
     Indication: GENERAL ANAESTHESIA
     Route: 065
  2. PROPOFOL [Suspect]
     Indication: GENERAL ANAESTHESIA
     Route: 042
  3. FENTANYL [Suspect]
     Indication: GENERAL ANAESTHESIA
     Route: 042

REACTIONS (1)
  - Abdominal distension [Unknown]
